FAERS Safety Report 16127943 (Version 1)
Quarter: 2019Q1

REPORT INFORMATION
  Report Type: Spontaneous
  Country: US (occurrence: US)
  Receive Date: 20190328
  Receipt Date: 20190328
  Transmission Date: 20190418
  Serious: No
  Sender: FDA-Public Use
  Company Number: US-TEVA-2018-US-895022

PATIENT
  Age: 56 Year
  Sex: Male

DRUGS (1)
  1. PROBENECID. [Suspect]
     Active Substance: PROBENECID
     Indication: CARDIAC FAILURE CHRONIC
     Dosage: HIGH DOSES
     Route: 048

REACTIONS (1)
  - Off label use [Unknown]
